FAERS Safety Report 20612288 (Version 1)
Quarter: 2022Q1

REPORT INFORMATION
  Report Type: Spontaneous
  Country: US (occurrence: None)
  Receive Date: 20220318
  Receipt Date: 20220318
  Transmission Date: 20220424
  Serious: Yes (Hospitalization, Other)
  Sender: FDA-Public Use
  Company Number: 2022A111486

PATIENT
  Age: 68 Year
  Sex: Male
  Weight: 170 kg

DRUGS (20)
  1. METOPROLOL [Suspect]
     Active Substance: METOPROLOL
     Route: 048
     Dates: start: 2010
  2. ROSUVASTATIN [Suspect]
     Active Substance: ROSUVASTATIN
     Dosage: UNKNOWN
     Route: 048
     Dates: start: 2009
  3. CABAZITAXEL [Suspect]
     Active Substance: CABAZITAXEL
     Indication: Prostate cancer
     Route: 042
     Dates: start: 20211222, end: 20211222
  4. CABAZITAXEL [Suspect]
     Active Substance: CABAZITAXEL
     Indication: Prostate cancer
     Route: 042
     Dates: start: 20220119, end: 20220119
  5. CARBOPLATIN [Suspect]
     Active Substance: CARBOPLATIN
     Indication: Prostate cancer
     Dosage: AUC 4, EVERY 3 WEEKS
     Route: 042
     Dates: start: 20211222, end: 20211222
  6. CARBOPLATIN [Suspect]
     Active Substance: CARBOPLATIN
     Indication: Prostate cancer
     Dosage: AUC 4, EVERY 3 WEEKS
     Route: 042
     Dates: start: 20220119, end: 20220119
  7. CARBOPLATIN [Suspect]
     Active Substance: CARBOPLATIN
     Indication: Prostate cancer
     Dosage: UNKNOWN
     Route: 065
  8. CHLORHEXIDINE [Concomitant]
     Active Substance: CHLORHEXIDINE
     Dates: start: 202105
  9. HYDROGEN PEROXIDE [Concomitant]
     Active Substance: HYDROGEN PEROXIDE
     Dates: start: 202105
  10. FUROSEMIDE [Concomitant]
     Active Substance: FUROSEMIDE
     Dates: start: 2013
  11. GABAPENTIN [Concomitant]
     Active Substance: GABAPENTIN
     Indication: Neuropathy peripheral
     Dates: start: 202103
  12. LEVOTHYROXINE [Concomitant]
     Active Substance: LEVOTHYROXINE
     Dates: start: 2016
  13. METOPROLOL SUCCINATE [Concomitant]
     Active Substance: METOPROLOL SUCCINATE
     Dates: start: 2010
  14. ASPIRIN [Concomitant]
     Active Substance: ASPIRIN
  15. ROSUVASTATIN [Concomitant]
     Active Substance: ROSUVASTATIN
     Dates: start: 2009
  16. ONDANSETRON [Concomitant]
     Active Substance: ONDANSETRON
     Dates: start: 20211226
  17. DORZOLAMIDE AND TIMOLOL [Concomitant]
     Active Substance: DORZOLAMIDE HYDROCHLORIDE\TIMOLOL MALEATE
     Dates: start: 202103
  18. DEXAMETHASONE [Concomitant]
     Active Substance: DEXAMETHASONE
     Dates: start: 20211222, end: 20220106
  19. PALONOSETRON [Concomitant]
     Active Substance: PALONOSETRON
     Dates: start: 20211222, end: 20220106
  20. PREDNISONE [Concomitant]
     Active Substance: PREDNISONE
     Dates: start: 20220112

REACTIONS (26)
  - Febrile neutropenia [Recovered/Resolved]
  - Ileus [Unknown]
  - Pancytopenia [Unknown]
  - Hypokalaemia [Unknown]
  - Atrial fibrillation [Recovered/Resolved]
  - Nausea [Unknown]
  - Diarrhoea [Unknown]
  - COVID-19 [Recovered/Resolved]
  - Stomatitis [Recovered/Resolved]
  - Dysuria [Recovered/Resolved]
  - Rash maculo-papular [Unknown]
  - Dizziness [Unknown]
  - Fatigue [Unknown]
  - Decreased appetite [Unknown]
  - Asthenia [Unknown]
  - Oropharyngeal pain [Unknown]
  - Abdominal pain [Unknown]
  - Chills [Unknown]
  - Pallor [Unknown]
  - Pyrexia [Unknown]
  - Tachycardia [Unknown]
  - Hyponatraemia [Recovered/Resolved]
  - Acute sinusitis [Unknown]
  - Hypophagia [Unknown]
  - Chronic sinusitis [Unknown]
  - Hypophosphataemia [Recovered/Resolved]

NARRATIVE: CASE EVENT DATE: 20211226
